FAERS Safety Report 10048639 (Version 1)
Quarter: 2014Q1

REPORT INFORMATION
  Report Type: Spontaneous
  Country: US (occurrence: US)
  Receive Date: 20140331
  Receipt Date: 20140331
  Transmission Date: 20141002
  Serious: No
  Sender: FDA-Public Use
  Company Number: US-PFIZER INC-2014089969

PATIENT
  Age: 51 Year
  Sex: Female

DRUGS (1)
  1. LYRICA [Suspect]
     Dosage: 50MG THREE OR FOUR TABLETS DAILY
     Dates: start: 200808

REACTIONS (2)
  - Feeling abnormal [Unknown]
  - Weight increased [Unknown]
